FAERS Safety Report 24696959 (Version 1)
Quarter: 2024Q4

REPORT INFORMATION
  Report Type: Spontaneous
  Country: IL (occurrence: IL)
  Receive Date: 20241204
  Receipt Date: 20241204
  Transmission Date: 20250115
  Serious: Yes (Hospitalization, Other)
  Sender: PFIZER
  Company Number: IL-PFIZER INC-PV202400156252

PATIENT
  Age: 10 Year
  Sex: Male

DRUGS (4)
  1. NGENLA [Suspect]
     Active Substance: SOMATROGON-GHLA
     Dosage: UNK
  2. NGENLA [Suspect]
     Active Substance: SOMATROGON-GHLA
     Dosage: UNK
  3. NGENLA [Suspect]
     Active Substance: SOMATROGON-GHLA
     Dosage: UNK
  4. NGENLA [Suspect]
     Active Substance: SOMATROGON-GHLA
     Dosage: UNK

REACTIONS (1)
  - Seizure [Unknown]
